FAERS Safety Report 19883878 (Version 1)
Quarter: 2021Q3

REPORT INFORMATION
  Report Type: Spontaneous
  Country: US (occurrence: US)
  Receive Date: 20210925
  Receipt Date: 20210925
  Transmission Date: 20211014
  Serious: No
  Sender: FDA-Public Use
  Company Number: None

PATIENT
  Age: 25 Year
  Sex: Female
  Weight: 112.5 kg

DRUGS (2)
  1. CASIRIVIMAB AND IMDEVIMAB [Suspect]
     Active Substance: CASIRIVIMAB\IMDEVIMAB
     Indication: COVID-19
     Dosage: ?          OTHER FREQUENCY:ONCE;?
     Route: 058
     Dates: start: 20210925, end: 20210925
  2. CASIRIVIMAB AND IMDEVIMAB [Concomitant]
     Active Substance: CASIRIVIMAB\IMDEVIMAB
     Dates: start: 20210925, end: 20210925

REACTIONS (5)
  - Nausea [None]
  - Vomiting [None]
  - Hypotension [None]
  - Dizziness [None]
  - Incorrect dose administered [None]

NARRATIVE: CASE EVENT DATE: 20210925
